FAERS Safety Report 5337211-7 (Version None)
Quarter: 2007Q2

REPORT INFORMATION
  Report Type: 
  Country: None (occurrence: None)
  Receive Date: 20070529
  Receipt Date: 20070523
  Transmission Date: 20071010
  Serious: Yes (Other)
  Sender: FDA-Public Use
  Company Number: A0652614A

PATIENT
  Age: 61 Year
  Sex: Male

DRUGS (4)
  1. AVANDIA [Suspect]
     Dosage: 4MG TWICE PER DAY
     Route: 048
     Dates: start: 20050101, end: 20070523
  2. HUMULIN R [Concomitant]
  3. OMEGA 3 [Concomitant]
  4. TRICOR [Concomitant]

REACTIONS (4)
  - BALANCE DISORDER [None]
  - BRAIN OEDEMA [None]
  - FALL [None]
  - OEDEMA PERIPHERAL [None]
